FAERS Safety Report 7587545-0 (Version None)
Quarter: 2011Q3

REPORT INFORMATION
  Report Type: 
  Country: None (occurrence: None)
  Receive Date: 20110704
  Receipt Date: 20110620
  Transmission Date: 20111222
  Serious: Yes (Hospitalization)
  Sender: FDA-Public Use
  Company Number: PHHY2011TW50402

PATIENT
  Sex: Female

DRUGS (1)
  1. GLEEVEC [Suspect]
     Indication: CHRONIC MYELOID LEUKAEMIA
     Dosage: 400 MG, DAILY
     Route: 048
     Dates: start: 20110607

REACTIONS (10)
  - BLOOD GLUCOSE DECREASED [None]
  - RASH [None]
  - DIARRHOEA [None]
  - DECREASED APPETITE [None]
  - VOMITING [None]
  - FLUID RETENTION [None]
  - ABDOMINAL DISCOMFORT [None]
  - OEDEMA [None]
  - PYREXIA [None]
  - PRURITUS [None]
